FAERS Safety Report 8542909-3 (Version None)
Quarter: 2012Q3

REPORT INFORMATION
  Report Type: 
  Country: None (occurrence: None)
  Receive Date: 20120716
  Receipt Date: 20120705
  Transmission Date: 20120928
  Serious: Yes (Hospitalization)
  Sender: FDA-Public Use
  Company Number: 2012070023

PATIENT
  Age: 55 Year
  Weight: 72.5755 kg

DRUGS (2)
  1. ASACOL [Concomitant]
  2. SFROWASA [Suspect]
     Indication: COLITIS ULCERATIVE
     Dosage: 4 G/60 ML (AS REQUIRED), RECTAL
     Route: 054
     Dates: start: 20020101

REACTIONS (1)
  - ROTATOR CUFF SYNDROME [None]
